FAERS Safety Report 7470266-2 (Version None)
Quarter: 2011Q2

REPORT INFORMATION
  Report Type: 
  Country: None (occurrence: None)
  Receive Date: 20110510
  Receipt Date: 20110426
  Transmission Date: 20111010
  Serious: Yes (Hospitalization)
  Sender: FDA-Public Use
  Company Number: US-JNJFOC-20110309473

PATIENT
  Sex: Female
  Weight: 57.38 kg

DRUGS (7)
  1. XANAX [Concomitant]
  2. ATENOLOL [Concomitant]
     Indication: HYPERTENSION
  3. REMICADE [Suspect]
     Indication: CROHN'S DISEASE
     Route: 042
  4. ASACOL [Concomitant]
  5. MARINOL [Concomitant]
  6. METHOTREXATE [Concomitant]
  7. PRILOSEC [Concomitant]

REACTIONS (1)
  - NON-HODGKIN'S LYMPHOMA [None]
